FAERS Safety Report 12217755 (Version 2)
Quarter: 2016Q2

REPORT INFORMATION
  Report Type: Report from Study
  Country: US (occurrence: US)
  Receive Date: 20160329
  Receipt Date: 20160404
  Transmission Date: 20160815
  Serious: No
  Sender: FDA-Public Use
  Company Number: US-MDT-ADR-2016-00032

PATIENT
  Age: 56 Year
  Sex: Male

DRUGS (9)
  1. COMPOUNDED BACLOFEN [Suspect]
     Active Substance: BACLOFEN
     Dosage: 79.95MCG/DAY
     Route: 037
  2. COMPOUNDED BACLOFEN [Suspect]
     Active Substance: BACLOFEN
     Dosage: 91.89MCG/DAY
     Route: 037
  3. MORPHINE ORAL SOLUTION [Suspect]
     Active Substance: MORPHINE SULFATE
     Route: 048
  4. METHADONE [Suspect]
     Active Substance: METHADONE HYDROCHLORIDE
  5. BUPIVACAINE. [Suspect]
     Active Substance: BUPIVACAINE
     Dosage: 13.784MG/DAY
     Route: 037
  6. DILAUDID [Suspect]
     Active Substance: HYDROMORPHONE HYDROCHLORIDE
     Dosage: 0.7995MG/DAY
     Route: 037
  7. BUPIVACAINE. [Suspect]
     Active Substance: BUPIVACAINE
     Dosage: 11.992 MG/DAY
     Route: 037
  8. DILAUDID [Suspect]
     Active Substance: HYDROMORPHONE HYDROCHLORIDE
     Dosage: 0.9189MG/DAY
     Route: 037
  9. MORPHINE [Suspect]
     Active Substance: MORPHINE
     Route: 037

REACTIONS (3)
  - Pain [Recovered/Resolved]
  - Adverse drug reaction [Recovered/Resolved]
  - Electric shock [Recovered/Resolved]

NARRATIVE: CASE EVENT DATE: 20151229
